FAERS Safety Report 22136207 (Version 1)
Quarter: 2023Q1

REPORT INFORMATION
  Report Type: Spontaneous
  Country: US (occurrence: US)
  Receive Date: 20230324
  Receipt Date: 20230324
  Transmission Date: 20230418
  Serious: Yes (Other)
  Sender: FDA-Public Use
  Company Number: US-FreseniusKabi-FK202303897

PATIENT
  Age: 39 Year
  Sex: Female

DRUGS (1)
  1. NEOSTIGMINE [Suspect]
     Active Substance: NEOSTIGMINE
     Indication: Neuromuscular blockade reversal

REACTIONS (3)
  - Stress cardiomyopathy [Unknown]
  - Cardiac arrest [Unknown]
  - Exposure during pregnancy [Unknown]
